FAERS Safety Report 6561388-9 (Version None)
Quarter: 2010Q1

REPORT INFORMATION
  Report Type: 
  Country: None (occurrence: None)
  Receive Date: 20100130
  Receipt Date: 20091014
  Transmission Date: 20100710
  Serious: No
  Sender: FDA-Public Use
  Company Number: US-ABBOTT-09P-163-0603589-00

PATIENT
  Sex: Male
  Weight: 89.892 kg

DRUGS (5)
  1. HUMIRA [Suspect]
     Indication: PSORIASIS
     Dates: start: 20070601, end: 20090401
  2. WELLBUTRIN [Concomitant]
     Indication: DEPRESSION
  3. LEVOTHYROXINE SODIUM [Concomitant]
     Indication: HYPOTHYROIDISM
  4. SIMVASTATIN [Concomitant]
     Indication: BLOOD CHOLESTEROL INCREASED
  5. DOXAZOSIN MESYLATE [Concomitant]
     Indication: PROSTATOMEGALY

REACTIONS (1)
  - ONYCHOMADESIS [None]
